FAERS Safety Report 7431741-X (Version None)
Quarter: 2011Q2

REPORT INFORMATION
  Report Type: 
  Country: None (occurrence: None)
  Receive Date: 20110422
  Receipt Date: 20110419
  Transmission Date: 20111010
  Serious: Yes (Hospitalization)
  Sender: FDA-Public Use
  Company Number: US-BIOGENIDEC-2010BI042072

PATIENT
  Age: 57 Year
  Sex: Female

DRUGS (2)
  1. TYSABRI [Suspect]
     Indication: MULTIPLE SCLEROSIS
     Route: 042
     Dates: start: 20100414, end: 20100623
  2. AVONEX [Concomitant]
     Indication: MULTIPLE SCLEROSIS
     Route: 030
     Dates: start: 20040129, end: 20080101

REACTIONS (7)
  - PAIN IN EXTREMITY [None]
  - URINARY TRACT INFECTION [None]
  - MENISCUS LESION [None]
  - LOSS OF CONTROL OF LEGS [None]
  - UROSEPSIS [None]
  - JOINT HYPEREXTENSION [None]
  - MOBILITY DECREASED [None]
